FAERS Safety Report 4973437-X (Version None)
Quarter: 2006Q2

REPORT INFORMATION
  Report Type: 
  Country: None (occurrence: None)
  Receive Date: 20060410
  Receipt Date: 20060327
  Transmission Date: 20061013
  Serious: Yes (Death, Other)
  Sender: FDA-Public Use
  Company Number: T200600119

PATIENT
  Age: 81 Year
  Sex: Female

DRUGS (1)
  1. OPTIRAY 160 [Suspect]
     Indication: COMPUTERISED TOMOGRAM
     Dosage: 100 ML, SINGLE, INTRAVENOUS
     Route: 042
     Dates: start: 20060310, end: 20060310

REACTIONS (4)
  - AIR EMBOLISM [None]
  - CARDIO-RESPIRATORY ARREST [None]
  - DYSPNOEA [None]
  - LOSS OF CONSCIOUSNESS [None]
